FAERS Safety Report 8154261-6 (Version None)
Quarter: 2012Q1

REPORT INFORMATION
  Report Type: 
  Country: None (occurrence: None)
  Receive Date: 20120221
  Receipt Date: 20120214
  Transmission Date: 20120608
  Serious: Yes (Other)
  Sender: FDA-Public Use
  Company Number: BR-PFIZER INC-2012039668

PATIENT
  Age: 74 Year
  Sex: Female

DRUGS (5)
  1. ATENOLOL [Concomitant]
  2. LATANOPROST [Suspect]
     Indication: GLAUCOMA
     Dosage: [LATANOPROST 3UG] / [TIMOLOL MALEATE 300UG] (ONE DROP IN EACH EYE) ONCE DAILY
     Route: 047
     Dates: start: 20110101
  3. GLUCOSAMINE [Concomitant]
  4. CALCIUM [Concomitant]
     Indication: BONE DISORDER
  5. XALATAN [Suspect]
     Indication: GLAUCOMA
     Dosage: 1.5 UG (ONE DROP) IN EACH EYE ONCE DAILY
     Route: 047
     Dates: start: 20080101, end: 20110101

REACTIONS (4)
  - OSTEOPOROSIS [None]
  - FALL [None]
  - ANKLE FRACTURE [None]
  - BONE PAIN [None]
